FAERS Safety Report 24338687 (Version 1)
Quarter: 2024Q3

REPORT INFORMATION
  Report Type: Spontaneous
  Country: PL (occurrence: PL)
  Receive Date: 20240919
  Receipt Date: 20240919
  Transmission Date: 20241017
  Serious: Yes (Other)
  Sender: JOHNSON AND JOHNSON
  Company Number: PL-JNJFOC-20240933280

PATIENT
  Age: 34 Year
  Sex: Female

DRUGS (11)
  1. RISPERDAL [Suspect]
     Active Substance: RISPERIDONE
     Indication: Depression
     Route: 065
  2. RISPERDAL [Suspect]
     Active Substance: RISPERIDONE
     Indication: Anxiety disorder
  3. BUSPIRONE [Suspect]
     Active Substance: BUSPIRONE HYDROCHLORIDE
     Indication: Depression
     Route: 065
  4. BUSPIRONE [Suspect]
     Active Substance: BUSPIRONE HYDROCHLORIDE
     Indication: Anxiety disorder
  5. TRAZODONE [Suspect]
     Active Substance: TRAZODONE HYDROCHLORIDE
     Indication: Depression
     Route: 065
  6. TRAZODONE [Suspect]
     Active Substance: TRAZODONE HYDROCHLORIDE
     Indication: Anxiety disorder
  7. DIAZEPAM [Concomitant]
     Active Substance: DIAZEPAM
     Indication: Epilepsy
  8. LEVETIRACETAM [Concomitant]
     Active Substance: LEVETIRACETAM
     Indication: Epilepsy
     Dosage: RAPID INTRAVENOUS INFUSION.
  9. LEVETIRACETAM [Concomitant]
     Active Substance: LEVETIRACETAM
     Dosage: 2 X 1500 MG
  10. LAMOTRIGINE [Concomitant]
     Active Substance: LAMOTRIGINE
     Indication: Epilepsy
     Dosage: 2 X 250 MG
  11. LACOSAMIDE [Concomitant]
     Active Substance: LACOSAMIDE
     Indication: Epilepsy
     Dosage: 2 X 200 MG

REACTIONS (2)
  - Exposure during pregnancy [Recovered/Resolved]
  - Off label use [Unknown]
